FAERS Safety Report 9630790 (Version 2)
Quarter: 2014Q2

REPORT INFORMATION
  Report Type: Spontaneous
  Country: US (occurrence: US)
  Receive Date: 20131018
  Receipt Date: 20140529
  Transmission Date: 20141212
  Serious: Yes (Other)
  Sender: FDA-Public Use
  Company Number: US-PFIZER INC-2013297256

PATIENT
  Age: 48 Year
  Sex: Male
  Weight: 72.58 kg

DRUGS (1)
  1. IBUPROFEN [Suspect]
     Route: 065

REACTIONS (1)
  - Haemorrhage [Unknown]
